FAERS Safety Report 20856927 (Version 1)
Quarter: 2022Q2

REPORT INFORMATION
  Report Type: Spontaneous
  Country: US (occurrence: US)
  Receive Date: 20220520
  Receipt Date: 20220520
  Transmission Date: 20220721
  Serious: No
  Sender: FDA-Public Use
  Company Number: US-SANOFI-01103218

PATIENT
  Sex: Female

DRUGS (2)
  1. AUBAGIO [Suspect]
     Active Substance: TERIFLUNOMIDE
     Indication: Product used for unknown indication
     Dosage: UNK
  2. MSM [METHYLSULFONYLMETHANE] [Concomitant]

REACTIONS (3)
  - Musculoskeletal disorder [Unknown]
  - Pain [Unknown]
  - Memory impairment [Unknown]
